FAERS Safety Report 14855402 (Version 1)
Quarter: 2018Q2

REPORT INFORMATION
  Report Type: Spontaneous
  Country: US (occurrence: US)
  Receive Date: 20180507
  Receipt Date: 20180507
  Transmission Date: 20180711
  Serious: No
  Sender: FDA-Public Use
  Company Number: US-ROCHE-1970051

PATIENT
  Sex: Female
  Weight: 84.44 kg

DRUGS (4)
  1. PREDNISONE. [Suspect]
     Active Substance: PREDNISONE
     Indication: PRURITUS
     Dosage: ONE TIME DOSE ;ONGOING: NO
     Route: 048
     Dates: start: 20170605
  2. ESBRIET [Suspect]
     Active Substance: PIRFENIDONE
     Indication: LUNG DISORDER
     Dosage: 3 CAPSULE 3 TIMES PER DAY ;ONGOING: NO
     Route: 048
     Dates: start: 201705, end: 20170622
  3. PREDNISONE. [Suspect]
     Active Substance: PREDNISONE
     Indication: RASH
  4. ESBRIET [Suspect]
     Active Substance: PIRFENIDONE
     Dosage: 3 CAPSULE 3 TIMES PER DAY ;ONGOING: NO
     Route: 048
     Dates: start: 20170625, end: 20170628

REACTIONS (3)
  - Rash [Recovering/Resolving]
  - Scar [Not Recovered/Not Resolved]
  - Pruritus [Recovered/Resolved]
